FAERS Safety Report 5575717-6 (Version None)
Quarter: 2007Q4

REPORT INFORMATION
  Report Type: 
  Country: None (occurrence: None)
  Receive Date: 20071221
  Receipt Date: 20071207
  Transmission Date: 20080405
  Serious: Yes (Hospitalization)
  Sender: FDA-Public Use
  Company Number: S07-UKI-06288-01

PATIENT
  Age: 84 Year
  Sex: Female

DRUGS (19)
  1. CITALOPRAM HYDROBROMIDE [Suspect]
     Indication: DEPRESSION
     Dosage: 10 MG QD PO
     Route: 048
     Dates: start: 20070924, end: 20071019
  2. ASPIRIN [Concomitant]
  3. CHLORPHENAMINE [Concomitant]
  4. CLOTRIMAZOLE [Concomitant]
  5. DIAZEPAM [Concomitant]
  6. EURAX (CROTAMITON/HYDROCORTISONE) [Concomitant]
  7. IBUPROFEN [Concomitant]
  8. LACTULOSE [Concomitant]
  9. LANSOPRAZOLE [Concomitant]
  10. LOPERAMIDE HCL [Concomitant]
  11. MOVICOL [Concomitant]
  12. OXYBUTYNIN CHLORIDE [Concomitant]
  13. PARACETAMOL [Concomitant]
  14. SIMVASTATIN [Concomitant]
  15. SUDOCREM [Concomitant]
  16. TEMAZEPAM [Concomitant]
  17. TOPAL [Concomitant]
  18. SALIVIX [Concomitant]
  19. PERNATON GREEN LIPPED KUSSEL EXTRACT [Concomitant]

REACTIONS (2)
  - CHOREA [None]
  - OVERDOSE [None]
